FAERS Safety Report 4297538-7 (Version None)
Quarter: 2004Q1

REPORT INFORMATION
  Report Type: 
  Country: None (occurrence: None)
  Receive Date: 20040126
  Receipt Date: 20030829
  Transmission Date: 20041129
  Serious: No
  Sender: FDA-Public Use
  Company Number: USA030945883

PATIENT
  Age: 16 Year
  Sex: Male
  Weight: 68 kg

DRUGS (1)
  1. STRATTERA [Suspect]
     Indication: ATTENTION DEFICIT/HYPERACTIVITY DISORDER
     Dosage: 120 MG
     Dates: start: 20030801

REACTIONS (6)
  - DECREASED APPETITE [None]
  - DISTURBANCE IN ATTENTION [None]
  - DRUG INEFFECTIVE [None]
  - HEART RATE INCREASED [None]
  - PRESCRIBED OVERDOSE [None]
  - WEIGHT DECREASED [None]
